FAERS Safety Report 9235074 (Version 4)
Quarter: 2014Q2

REPORT INFORMATION
  Report Type: Spontaneous
  Country: DE (occurrence: DE)
  Receive Date: 20130416
  Receipt Date: 20140401
  Transmission Date: 20141212
  Serious: Yes (Hospitalization, Other)
  Sender: FDA-Public Use
  Company Number: DE-B.I. PHARMACEUTICALS,INC./RIDGEFIELD-2013-DE-01054DE

PATIENT
  Age: 60 Year
  Sex: Female
  Weight: 89 kg

DRUGS (3)
  1. SIFROL [Suspect]
     Indication: PARKINSON^S DISEASE
     Dosage: 1.05 MG
     Route: 065
     Dates: start: 1994
  2. ANASTROZOL [Concomitant]
     Indication: OESTROGEN RECEPTOR POSITIVE BREAST CANCER
     Dosage: 1 MG
     Route: 065
     Dates: start: 2013
  3. RAMIPRIL ISIS [Concomitant]
     Indication: HYPERTENSION
     Dosage: DAILY DOSE: 1 IN THE MORNING AND 2 IN THE EVENING
     Route: 065
     Dates: start: 2011

REACTIONS (10)
  - Blood pressure abnormal [Unknown]
  - Myocardial infarction [Unknown]
  - Breast cancer [Unknown]
  - Musculoskeletal discomfort [Unknown]
  - Blood pressure fluctuation [Unknown]
  - Tremor [Not Recovered/Not Resolved]
  - Arthralgia [Not Recovered/Not Resolved]
  - Somnolence [Unknown]
  - Nausea [Unknown]
  - Fatigue [Not Recovered/Not Resolved]
